FAERS Safety Report 5535482-5 (Version None)
Quarter: 2007Q4

REPORT INFORMATION
  Report Type: 
  Country: None (occurrence: None)
  Receive Date: 20071203
  Receipt Date: 20071203
  Transmission Date: 20080405
  Serious: Yes (Life-Threatening, Hospitalization, Other)
  Sender: FDA-Public Use
  Company Number: None

PATIENT
  Age: 84 Year
  Sex: Male
  Weight: 80 kg

DRUGS (7)
  1. PANTOPRAZOLE SODIUM [Suspect]
     Indication: GASTRIC ULCER
     Dosage: 40 MG  PER DAY  BUCCAL  (DURATION: 2 DAYS-  15 DAYS - 10 DAYS--)
     Route: 002
  2. PANTOPRAZOLE SODIUM [Suspect]
     Indication: PROPHYLAXIS
     Dosage: 40 MG  PER DAY  BUCCAL  (DURATION: 2 DAYS-  15 DAYS - 10 DAYS--)
     Route: 002
  3. OMEPRAZOLE [Suspect]
     Indication: GASTRIC ULCER
     Dosage: 20 MG  PER DAY  BUCCAL
     Route: 002
  4. OMEPRAZOLE [Suspect]
     Indication: PROPHYLAXIS
     Dosage: 20 MG  PER DAY  BUCCAL
     Route: 002
  5. SOLUPRED [Concomitant]
  6. OXYBRAL [Concomitant]
  7. VITAMIN B [Concomitant]

REACTIONS (11)
  - CARDIAC FAILURE [None]
  - DIABETES MELLITUS [None]
  - DYSPNOEA [None]
  - ESCHERICHIA INFECTION [None]
  - FATIGUE [None]
  - HAEMOLYTIC ANAEMIA [None]
  - HAEMOLYTIC URAEMIC SYNDROME [None]
  - PALLOR [None]
  - RALES [None]
  - SPINAL OSTEOARTHRITIS [None]
  - SPLENOMEGALY [None]
